FAERS Safety Report 13101291 (Version 1)
Quarter: 2017Q1

REPORT INFORMATION
  Report Type: Spontaneous
  Country: US (occurrence: US)
  Receive Date: 20170110
  Receipt Date: 20170110
  Transmission Date: 20170428
  Serious: Yes (Other)
  Sender: FDA-Public Use
  Company Number: US-ASTELLAS-2016US037487

PATIENT
  Age: 18 Year
  Sex: Male

DRUGS (1)
  1. PROGRAF [Suspect]
     Active Substance: TACROLIMUS\TACROLIMUS ANHYDROUS
     Indication: LIVER TRANSPLANT
     Route: 048
     Dates: start: 20150121

REACTIONS (3)
  - Cholangitis sclerosing [Unknown]
  - Bile duct stenosis [Unknown]
  - Cholangitis [Recovered/Resolved]

NARRATIVE: CASE EVENT DATE: 20160901
